FAERS Safety Report 22299630 (Version 1)
Quarter: 2023Q2

REPORT INFORMATION
  Report Type: Spontaneous
  Country: US (occurrence: None)
  Receive Date: 20230508
  Receipt Date: 20230508
  Transmission Date: 20230721
  Serious: Yes (Other)
  Sender: FDA-Public Use
  Company Number: None

PATIENT
  Age: 58 Year
  Sex: Female
  Weight: 65.32 kg

DRUGS (1)
  1. HIZENTRA [Suspect]
     Active Substance: HUMAN IMMUNOGLOBULIN G
     Indication: Selective IgG subclass deficiency
     Dosage: 30 G GRAM Q2 WEEKS SUBCUTANEOUS?
     Route: 058
     Dates: start: 20210212

REACTIONS (4)
  - Infusion site reaction [None]
  - Infusion site erythema [None]
  - Infusion site pruritus [None]
  - Infusion site induration [None]

NARRATIVE: CASE EVENT DATE: 20230508
